FAERS Safety Report 8021463-9 (Version None)
Quarter: 2012Q1

REPORT INFORMATION
  Report Type: 
  Country: None (occurrence: None)
  Receive Date: 20120104
  Receipt Date: 20111231
  Transmission Date: 20120608
  Serious: Yes (Other)
  Sender: FDA-Public Use
  Company Number: US-JNJFOC-20120100346

PATIENT

DRUGS (3)
  1. NUCYNTA [Suspect]
     Indication: PRODUCT USED FOR UNKNOWN INDICATION
     Dosage: 6 TIMES A DAY
     Route: 065
  2. ANTINAUSEA MEDICATION [Interacting]
     Indication: NAUSEA
     Route: 065
  3. ANTI-ANXIETY MEDICATION (NOS) [Interacting]
     Indication: ANXIETY
     Route: 065

REACTIONS (2)
  - ADVERSE DRUG REACTION [None]
  - DRUG INTERACTION [None]
